FAERS Safety Report 8229609-4 (Version None)
Quarter: 2012Q1

REPORT INFORMATION
  Report Type: 
  Country: None (occurrence: None)
  Receive Date: 20120322
  Receipt Date: 20120314
  Transmission Date: 20120608
  Serious: Yes (Hospitalization)
  Sender: FDA-Public Use
  Company Number: PHHY2012FR023096

PATIENT
  Sex: Male

DRUGS (8)
  1. DIGOXIN [Concomitant]
     Dosage: UNK UKN, QD
  2. TIAPRIDAL [Suspect]
     Dosage: UNK UKN, UNK
     Route: 048
  3. DEPAKOTE [Suspect]
     Dosage: UNK UKN, UNK
  4. XANAX [Suspect]
     Dosage: UNK UKN, UNK
     Route: 048
  5. EQUANIL [Suspect]
     Dosage: UNK UKN, UNK
     Route: 048
     Dates: end: 20111024
  6. EXELON [Suspect]
     Dosage: 9.5 MG/24 HOURS
     Route: 062
  7. POLYETHYLENE GLYCOL [Concomitant]
     Dosage: UNK UKN, QD
  8. TRIMEPRAZINE TARTRATE [Suspect]
     Dosage: UNK UKN, UNK
     Route: 048
     Dates: end: 20111024

REACTIONS (2)
  - ABNORMAL BEHAVIOUR [None]
  - AGGRESSION [None]
